FAERS Safety Report 10418817 (Version 1)
Quarter: 2014Q2

REPORT INFORMATION
  Report Type: Spontaneous
  Country: US (occurrence: None)
  Receive Date: 20140617
  Receipt Date: 20140617
  Transmission Date: 20141212
  Serious: Yes (Other)
  Sender: FDA-Public Use
  Company Number: 1334517

PATIENT
  Age: 21 Year
  Sex: Male
  Weight: 65.77 kg

DRUGS (1)
  1. ACTEMRA [Suspect]
     Indication: JUVENILE IDIOPATHIC ARTHRITIS
     Route: 058
     Dates: start: 20111215

REACTIONS (1)
  - Infusion site reaction [None]
